FAERS Safety Report 12915764 (Version 1)
Quarter: 2016Q4

REPORT INFORMATION
  Report Type: Spontaneous
  Country: US (occurrence: US)
  Receive Date: 20161106
  Receipt Date: 20161106
  Transmission Date: 20170207
  Serious: No
  Sender: FDA-Public Use
  Company Number: US-AUROBINDO-AUR-APU-2016-09706

PATIENT
  Sex: Female

DRUGS (1)
  1. ESCITALOPRAM TABLETS USP 20MG [Suspect]
     Active Substance: ESCITALOPRAM OXALATE
     Indication: PRODUCT USED FOR UNKNOWN INDICATION
     Dosage: 1/2 TAB
     Route: 065

REACTIONS (2)
  - Diarrhoea [Unknown]
  - Nausea [Unknown]
